FAERS Safety Report 9848516 (Version 3)
Quarter: 2014Q1

REPORT INFORMATION
  Report Type: Report from Study
  Country: BR (occurrence: BR)
  Receive Date: 20140128
  Receipt Date: 20140227
  Transmission Date: 20141002
  Serious: Yes (Other)
  Sender: FDA-Public Use
  Company Number: PHHY2013BR039729

PATIENT
  Sex: Male

DRUGS (3)
  1. DIOVAN AMLO FIX [Suspect]
     Indication: HYPERTENSION
     Dosage: 1 DF, DAILY (160 MG VALS/ 5 MG AMLO)
     Route: 048
  2. DIOVAN AMLO FIX [Suspect]
     Dosage: 1 DF, DAILY (80 MG VALS/ 5 MG AMLO)
     Route: 048
  3. DIOVAN AMLO FIX [Suspect]
     Dosage: 1 DF, DAILY (160 MG VALS/ 5 MG AMLO )
     Route: 048

REACTIONS (8)
  - Transient ischaemic attack [Recovered/Resolved]
  - Arrhythmia [Not Recovered/Not Resolved]
  - Atrial fibrillation [Recovered/Resolved]
  - Vein disorder [Not Recovered/Not Resolved]
  - Arthritis [Not Recovered/Not Resolved]
  - Anxiety [Not Recovered/Not Resolved]
  - Oedema peripheral [Recovered/Resolved]
  - Blood pressure decreased [Recovered/Resolved]
